FAERS Safety Report 11701813 (Version 1)
Quarter: 2015Q4

REPORT INFORMATION
  Report Type: Spontaneous
  Country: US (occurrence: US)
  Receive Date: 20151105
  Receipt Date: 20151105
  Transmission Date: 20160304
  Serious: Yes (Hospitalization)
  Sender: FDA-Public Use
  Company Number: US-INCYTE CORPORATION-2015IN005514

PATIENT
  Age: 64 Year
  Sex: Male

DRUGS (1)
  1. JAKAFI [Suspect]
     Active Substance: RUXOLITINIB
     Indication: POLYCYTHAEMIA VERA
     Dosage: 10 MG (2 X 5MG), BID
     Route: 048
     Dates: start: 20150923

REACTIONS (3)
  - Fatigue [Unknown]
  - Vomiting [Unknown]
  - Renal pain [Unknown]

NARRATIVE: CASE EVENT DATE: 20151023
